FAERS Safety Report 13131359 (Version 1)
Quarter: 2017Q1

REPORT INFORMATION
  Report Type: Report from Study
  Country: JP (occurrence: JP)
  Receive Date: 20170119
  Receipt Date: 20170119
  Transmission Date: 20170428
  Serious: Yes (Other)
  Sender: FDA-Public Use
  Company Number: JP-MYLANLABS-2017M1002023

PATIENT

DRUGS (4)
  1. DOXORUBICIN [Suspect]
     Active Substance: DOXORUBICIN
     Dosage: 23 MG/M 2 ON DAY 4 IN A 21 DAY CYCLE
     Route: 041
  2. BORTEZOMIB [Suspect]
     Active Substance: BORTEZOMIB
     Indication: PLASMA CELL MYELOMA
     Dosage: 1.3 MG/M 2 ON DAYS 1,4,8 AND 11 IN A 21 DAY CYCLE; LATER, DOSE WAS CHANGED TO 1.0 MG/M2
     Route: 041
  3. DOXORUBICIN [Suspect]
     Active Substance: DOXORUBICIN
     Indication: PLASMA CELL MYELOMA
     Dosage: 30 MG/M 2 ON DAY 4 IN A 21 DAY CYCLE; LATER, CHANGED TO 23 MG/M2
     Route: 041
  4. BORTEZOMIB [Suspect]
     Active Substance: BORTEZOMIB
     Dosage: 1.0 MG/M 2 ON DAYS 1,4,8 AND 11 IN A 21 DAY CYCLE
     Route: 041

REACTIONS (13)
  - Blood lactate dehydrogenase increased [Unknown]
  - Blood glucose increased [Unknown]
  - Rash [Unknown]
  - Neutropenia [Unknown]
  - Hyponatraemia [Unknown]
  - Gastritis [Unknown]
  - Leukopenia [Unknown]
  - Blood alkaline phosphatase increased [Unknown]
  - Ileus [Recovered/Resolved]
  - Pyrexia [Unknown]
  - Bronchiolitis [Unknown]
  - Thrombocytopenia [Unknown]
  - Erythema multiforme [Unknown]
